FAERS Safety Report 23108677 (Version 1)
Quarter: 2023Q4

REPORT INFORMATION
  Report Type: Spontaneous
  Country: US (occurrence: None)
  Receive Date: 20231025
  Receipt Date: 20231025
  Transmission Date: 20240110
  Serious: Yes (Hospitalization)
  Sender: FDA-Public Use
  Company Number: None

PATIENT
  Sex: Female

DRUGS (1)
  1. CYCLOPHOSPHAMIDE [Suspect]
     Active Substance: CYCLOPHOSPHAMIDE
     Indication: Plasma cell myeloma in remission
     Dosage: FREQUENCY : WEEKLY;?
     Route: 048
     Dates: start: 20210914

REACTIONS (2)
  - Therapy interrupted [None]
  - Hospitalisation [None]
